FAERS Safety Report 12857565 (Version 2)
Quarter: 2016Q4

REPORT INFORMATION
  Report Type: Spontaneous
  Country: US (occurrence: US)
  Receive Date: 20161018
  Receipt Date: 20161212
  Transmission Date: 20170207
  Serious: Yes (Other)
  Sender: FDA-Public Use
  Company Number: US-FRESENIUS MEDICAL CARE RENAL THERAPIES GROUP-FMC-1608-000696

PATIENT
  Age: 19 Year
  Sex: Female
  Weight: 73 kg

DRUGS (1)
  1. DELFLEX [Suspect]
     Active Substance: CALCIUM CHLORIDE\DEXTROSE\MAGNESIUM CHLORIDE\SODIUM CHLORIDE\SODIUM LACTATE
     Indication: END STAGE RENAL DISEASE
     Route: 033
     Dates: start: 20160318

REACTIONS (4)
  - Acinetobacter test positive [None]
  - Bladder disorder [None]
  - Peritonitis bacterial [Recovered/Resolved]
  - Complication associated with device [None]

NARRATIVE: CASE EVENT DATE: 20160806
